FAERS Safety Report 18098582 (Version 5)
Quarter: 2022Q2

REPORT INFORMATION
  Report Type: Spontaneous
  Country: US (occurrence: US)
  Receive Date: 20200731
  Receipt Date: 20220513
  Transmission Date: 20220721
  Serious: Yes (Other)
  Sender: FDA-Public Use
  Company Number: US-JNJFOC-20200733693

PATIENT
  Age: 63 Year
  Sex: Female

DRUGS (5)
  1. ELMIRON [Suspect]
     Active Substance: PENTOSAN POLYSULFATE SODIUM
     Indication: Cystitis interstitial
     Route: 048
     Dates: start: 20010101, end: 20090101
  2. DEXILANT [Concomitant]
     Active Substance: DEXLANSOPRAZOLE
     Indication: Gastrooesophageal reflux disease
     Route: 065
     Dates: start: 19850101
  3. LEVOTHYROXINE [Concomitant]
     Active Substance: LEVOTHYROXINE
     Indication: Hypothyroidism
     Route: 065
     Dates: start: 19820101
  4. DULOXETINE [Concomitant]
     Active Substance: DULOXETINE
     Indication: Drug therapy
     Dates: start: 19900101
  5. GABAPENTIN [Concomitant]
     Active Substance: GABAPENTIN
     Indication: Pain
     Dates: start: 1992

REACTIONS (3)
  - Maculopathy [Unknown]
  - Age-related macular degeneration [Not Recovered/Not Resolved]
  - Retinal injury [Unknown]

NARRATIVE: CASE EVENT DATE: 20160101
